FAERS Safety Report 5024188-7 (Version None)
Quarter: 2006Q2

REPORT INFORMATION
  Report Type: 
  Country: None (occurrence: None)
  Receive Date: 20060428
  Receipt Date: 20050729
  Transmission Date: 20061013
  Serious: Yes (Hospitalization)
  Sender: FDA-Public Use
  Company Number: 2005P1000153

PATIENT
  Age: 27 Year
  Sex: Male

DRUGS (2)
  1. BUSULFAN (BUSULFAN) [Suspect]
     Dosage: .8 MG/KG; Q6H; IV
     Route: 042
     Dates: start: 20050517, end: 20050521
  2. CYCLOPHOSPHAMIDE [Suspect]
     Dosage: 60 MG/KG; QD; IV
     Route: 042
     Dates: start: 20050522, end: 20050523

REACTIONS (1)
  - CYSTITIS HAEMORRHAGIC [None]
